FAERS Safety Report 10175596 (Version 2)
Quarter: 2014Q2

REPORT INFORMATION
  Report Type: Report from Study
  Country: US (occurrence: US)
  Receive Date: 20140516
  Receipt Date: 20140602
  Transmission Date: 20141212
  Serious: Yes (Hospitalization)
  Sender: FDA-Public Use
  Company Number: US-BIOGENIDEC-2014BI044521

PATIENT
  Age: 62 Year
  Sex: Female

DRUGS (1)
  1. AVONEX [Suspect]
     Indication: MULTIPLE SCLEROSIS
     Route: 030
     Dates: start: 20050103, end: 201405

REACTIONS (5)
  - Multiple sclerosis [Not Recovered/Not Resolved]
  - Dehydration [Not Recovered/Not Resolved]
  - Dysphagia [Recovered/Resolved]
  - Arthritis [Not Recovered/Not Resolved]
  - Weight fluctuation [Recovered/Resolved]
